FAERS Safety Report 4944185-7 (Version None)
Quarter: 2006Q1

REPORT INFORMATION
  Report Type: 
  Country: None (occurrence: None)
  Receive Date: 20060309
  Receipt Date: 20060228
  Transmission Date: 20060701
  Serious: Yes (Hospitalization)
  Sender: FDA-Public Use
  Company Number: TPA2006A00088

PATIENT
  Age: 90 Year
  Sex: Female
  Weight: 58.514 kg

DRUGS (10)
  1. ACTOS [Suspect]
     Indication: DIABETES MELLITUS INADEQUATE CONTROL
     Dosage: 45 MG, 1 IN 1 D, PER ORAL
     Route: 048
     Dates: start: 20041101, end: 20051101
  2. NORVASC (AMLODIPINE) (5 MILLIGRAM) [Concomitant]
  3. RESTORIL (TEMAZEPAM) (15 MILLIGRAM) [Concomitant]
  4. BENAZEPRIL (BENAZEPRIL) (20 MILLIGRAM) [Concomitant]
  5. HCTZ (HYDROCHLOROTHIAZIDE) (25 MILLIGRAM) [Concomitant]
  6. MAG OXIDE (MAGNESIUM OXIDE) (400 MILLIGRAM) [Concomitant]
  7. OSCAL (CALCIUM CARBONATE) (500 MILLIGRAM) [Concomitant]
  8. LANTUS [Concomitant]
  9. LASIX (FUROSEMIDE) (20 MILLIGRAM) [Concomitant]
  10. KCL (POTASSIUM CHLORIDE) (20 MILLIEQUIVALENTS) [Concomitant]

REACTIONS (5)
  - ACUTE MYOCARDIAL INFARCTION [None]
  - ASTHENIA [None]
  - CARDIAC FAILURE CONGESTIVE [None]
  - PNEUMONIA [None]
  - PULMONARY OEDEMA [None]
